FAERS Safety Report 8599050-3 (Version None)
Quarter: 2012Q3

REPORT INFORMATION
  Report Type: 
  Country: None (occurrence: None)
  Receive Date: 20120816
  Receipt Date: 19920722
  Transmission Date: 20120928
  Serious: Yes (Hospitalization)
  Sender: FDA-Public Use
  Company Number: US-ROCHE-1101312

PATIENT
  Age: 46 Year
  Sex: Male

DRUGS (1)
  1. ACTIVASE [Suspect]
     Indication: ACUTE MYOCARDIAL INFARCTION

REACTIONS (1)
  - CHEST PAIN [None]
